FAERS Safety Report 7036056-X (Version None)
Quarter: 2010Q4

REPORT INFORMATION
  Report Type: 
  Country: None (occurrence: None)
  Receive Date: 20101008
  Receipt Date: 20100928
  Transmission Date: 20110411
  Serious: Yes (Hospitalization)
  Sender: FDA-Public Use
  Company Number: DE-ABBOTT-10P-062-0675099-00

PATIENT
  Sex: Male
  Weight: 112 kg

DRUGS (4)
  1. HUMIRA [Suspect]
     Indication: CROHN'S DISEASE
     Route: 058
  2. METEX [Concomitant]
     Indication: CROHN'S DISEASE
  3. DECORTIN H [Concomitant]
     Indication: CROHN'S DISEASE
  4. MAZAVANT [Concomitant]
     Indication: CROHN'S DISEASE

REACTIONS (1)
  - BURSITIS [None]
